FAERS Safety Report 4687607-1 (Version None)
Quarter: 2005Q2

REPORT INFORMATION
  Report Type: 
  Country: None (occurrence: None)
  Receive Date: 20050610
  Receipt Date: 20050530
  Transmission Date: 20051028
  Serious: Yes (Death)
  Sender: FDA-Public Use
  Company Number: JP-BRISTOL-MYERS SQUIBB COMPANY-12986469

PATIENT
  Age: 60 Year
  Sex: Male

DRUGS (6)
  1. CISPLATIN [Suspect]
     Indication: TESTIS CANCER
     Dosage: GIVEN ON CYCLE DAY 1
  2. ETOPOSIDE [Suspect]
     Indication: TESTIS CANCER
     Dosage: GIVEN ON CYCLE DAYS 1-5
  3. BLEOMYCIN [Suspect]
     Indication: TESTIS CANCER
     Dosage: GIVEN ON CYCLE DAYS 1, 8 AND 15
  4. CARBOPLATIN [Suspect]
     Indication: METASTASIS
     Dosage: GIVEN ON CYCLE DAYS 1, 3 AND 5
  5. CYCLOPHOSPHAMIDE [Suspect]
     Indication: METASTASIS
  6. RADIATION THERAPY [Suspect]
     Indication: METASTASIS
     Dosage: TOTAL DOSE OF 44 GY

REACTIONS (10)
  - APNOEA [None]
  - BLOOD CREATININE INCREASED [None]
  - INFLAMMATION [None]
  - INFLUENZA [None]
  - LOSS OF CONSCIOUSNESS [None]
  - METABOLIC ACIDOSIS [None]
  - MULTI-ORGAN FAILURE [None]
  - NECROTISING FASCIITIS [None]
  - OEDEMA GENITAL [None]
  - TOXIC SHOCK SYNDROME STREPTOCOCCAL [None]
